FAERS Safety Report 4793836-9 (Version None)
Quarter: 2005Q4

REPORT INFORMATION
  Report Type: 
  Country: None (occurrence: None)
  Receive Date: 20051006
  Receipt Date: 20051006
  Transmission Date: 20060501
  Serious: Yes (Hospitalization)
  Sender: FDA-Public Use
  Company Number: None

PATIENT
  Age: 91 Year
  Sex: Female

DRUGS (1)
  1. WARFARIN 4 MG [Suspect]
     Indication: PULMONARY OEDEMA
     Dosage: 4 MG; 8 MG MTWTHF;SS PO
     Route: 048

REACTIONS (8)
  - HAEMATOMA [None]
  - INJURY [None]
  - ISCHAEMIC ULCER [None]
  - OEDEMA [None]
  - SKIN ULCER [None]
  - WOUND HAEMORRHAGE [None]
  - WOUND NECROSIS [None]
  - WOUND SECRETION [None]
